FAERS Safety Report 16827008 (Version 1)
Quarter: 2019Q3

REPORT INFORMATION
  Report Type: Spontaneous
  Country: US (occurrence: US)
  Receive Date: 20190919
  Receipt Date: 20190919
  Transmission Date: 20191005
  Serious: Yes (Hospitalization)
  Sender: FDA-Public Use
  Company Number: US-ROCHE-2327997

PATIENT
  Age: 71 Year
  Sex: Female

DRUGS (1)
  1. ACTEMRA [Suspect]
     Active Substance: TOCILIZUMAB
     Indication: RHEUMATOID ARTHRITIS
     Dosage: PER 0.9 ML
     Route: 058
     Dates: start: 20190515, end: 201906

REACTIONS (4)
  - Dyspnoea [Unknown]
  - Chromaturia [Unknown]
  - Productive cough [Unknown]
  - Swelling [Unknown]

NARRATIVE: CASE EVENT DATE: 20190524
